FAERS Safety Report 25189808 (Version 2)
Quarter: 2025Q2

REPORT INFORMATION
  Report Type: Spontaneous
  Country: US (occurrence: US)
  Receive Date: 20250411
  Receipt Date: 20250620
  Transmission Date: 20250716
  Serious: No
  Sender: CSL BEHRING
  Company Number: US-BEH-2025201458

PATIENT
  Sex: Male

DRUGS (7)
  1. HEMGENIX [Suspect]
     Active Substance: ETRANACOGENE DEZAPARVOVEC
     Indication: Product used for unknown indication
     Route: 065
     Dates: start: 20250326
  2. PREDNISONE [Concomitant]
     Active Substance: PREDNISONE
     Dosage: 40 MG, QD
     Dates: start: 20250415, end: 20250421
  3. PREDNISONE [Concomitant]
     Active Substance: PREDNISONE
     Dosage: 20 MG, QD
     Dates: start: 20250422, end: 20250428
  4. PREDNISONE [Concomitant]
     Active Substance: PREDNISONE
     Dosage: 10 MG, QD
     Dates: start: 20250429, end: 20250505
  5. PREDNISONE [Concomitant]
     Active Substance: PREDNISONE
     Dates: start: 20250506, end: 20250506
  6. PREDNISONE [Concomitant]
     Active Substance: PREDNISONE
     Dosage: 10 MG, QD
     Dates: start: 20250529, end: 20250602
  7. PREDNISONE [Concomitant]
     Active Substance: PREDNISONE
     Dates: start: 20250603, end: 20250603

REACTIONS (4)
  - Coagulation factor IX level decreased [Unknown]
  - Decreased appetite [Unknown]
  - Aspartate aminotransferase increased [Unknown]
  - Alanine aminotransferase increased [Unknown]

NARRATIVE: CASE EVENT DATE: 20250101
